FAERS Safety Report 24465504 (Version 1)
Quarter: 2024Q4

REPORT INFORMATION
  Report Type: Report from Study
  Country: US (occurrence: US)
  Receive Date: 20241018
  Receipt Date: 20241018
  Transmission Date: 20250115
  Serious: No
  Sender: ROCHE
  Company Number: US-ROCHE-3532632

PATIENT
  Age: 21 Year

DRUGS (3)
  1. XOLAIR [Suspect]
     Active Substance: OMALIZUMAB
     Indication: Product used for unknown indication
     Route: 065
  2. CROMOLYN [Concomitant]
     Active Substance: CROMOLYN
  3. KETOTIFEN [Concomitant]
     Active Substance: KETOTIFEN

REACTIONS (6)
  - Insomnia [Unknown]
  - Dyskinesia [Unknown]
  - Muscle twitching [Unknown]
  - Ill-defined disorder [Unknown]
  - Food intolerance [Unknown]
  - Drug hypersensitivity [Unknown]
